FAERS Safety Report 14448368 (Version 1)
Quarter: 2018Q1

REPORT INFORMATION
  Report Type: Spontaneous
  Country: US (occurrence: US)
  Receive Date: 20180126
  Receipt Date: 20180126
  Transmission Date: 20180509
  Serious: Yes (Hospitalization, Disabling, Other)
  Sender: FDA-Public Use
  Company Number: None

PATIENT
  Age: 81 Year
  Sex: Female
  Weight: 66.7 kg

DRUGS (4)
  1. ENALPRIL [Concomitant]
  2. DIVALPROEX SODIUM DR [Concomitant]
     Active Substance: DIVALPROEX SODIUM
  3. CIPROFLOXACIN. [Suspect]
     Active Substance: CIPROFLOXACIN
     Indication: ENTEROBACTER TEST POSITIVE
     Route: 048
     Dates: start: 20171220, end: 20171225
  4. SIMVASTATIN. [Concomitant]
     Active Substance: SIMVASTATIN

REACTIONS (5)
  - Proteinuria [None]
  - Dehydration [None]
  - Acute kidney injury [None]
  - Tubulointerstitial nephritis [None]
  - Renal tubular necrosis [None]

NARRATIVE: CASE EVENT DATE: 20171225
